FAERS Safety Report 20705236 (Version 5)
Quarter: 2022Q3

REPORT INFORMATION
  Report Type: Report from Study
  Country: US (occurrence: US)
  Receive Date: 20220413
  Receipt Date: 20220920
  Transmission Date: 20221027
  Serious: Yes (Hospitalization, Other)
  Sender: FDA-Public Use
  Company Number: US-HORIZON THERAPEUTICS-HZN-2022-002641

PATIENT

DRUGS (5)
  1. TEPEZZA [Suspect]
     Active Substance: TEPROTUMUMAB-TRBW
     Indication: Endocrine ophthalmopathy
     Dosage: FIRST INFUSION
     Route: 042
     Dates: start: 20200623
  2. TEPEZZA [Suspect]
     Active Substance: TEPROTUMUMAB-TRBW
     Dosage: LAST INFUSION
     Route: 042
     Dates: start: 202108, end: 202108
  3. TEPEZZA [Suspect]
     Active Substance: TEPROTUMUMAB-TRBW
     Dosage: 1 ST INFUSION (2ND COURSE)
     Route: 042
     Dates: start: 20220421
  4. TEPEZZA [Suspect]
     Active Substance: TEPROTUMUMAB-TRBW
     Dosage: 2ND INFUSION (2ND COURSE)
     Route: 042
  5. PREDNISONE [Concomitant]
     Active Substance: PREDNISONE
     Indication: Product used for unknown indication
     Dosage: 80 MG

REACTIONS (13)
  - Diabetes mellitus [Unknown]
  - Optic nerve operation [Unknown]
  - Pulmonary embolism [Unknown]
  - Abdominal abscess [Unknown]
  - Optic nerve disorder [Unknown]
  - Weight decreased [Unknown]
  - Mobility decreased [Unknown]
  - Diarrhoea [Unknown]
  - Fatigue [Unknown]
  - Blood glucose increased [Unknown]
  - Symptom recurrence [Unknown]
  - Intentional product use issue [Unknown]
  - Inappropriate schedule of product administration [Unknown]

NARRATIVE: CASE EVENT DATE: 20220216
